FAERS Safety Report 21686912 (Version 15)
Quarter: 2025Q3

REPORT INFORMATION
  Report Type: Report from Study
  Country: US (occurrence: US)
  Receive Date: 20221206
  Receipt Date: 20250926
  Transmission Date: 20251021
  Serious: Yes (Hospitalization, Other)
  Sender: TAKEDA
  Company Number: US-TAKEDA-US201931534

PATIENT
  Age: 79 Year
  Sex: Female

DRUGS (10)
  1. LANADELUMAB [Suspect]
     Active Substance: LANADELUMAB
     Indication: Hereditary angioedema
     Dosage: 300 MILLIGRAM, Q2WEEKS
     Dates: start: 201810
  2. LANADELUMAB [Suspect]
     Active Substance: LANADELUMAB
     Indication: Immune system disorder
     Dosage: 300 MILLIGRAM, Q2WEEKS
     Dates: start: 20181022
  3. LANADELUMAB [Suspect]
     Active Substance: LANADELUMAB
     Dosage: 2 MILLILITER, Q2WEEKS
     Dates: start: 20181023
  4. LANADELUMAB [Suspect]
     Active Substance: LANADELUMAB
     Dosage: 2 MILLIGRAM, Q2WEEKS
     Dates: start: 202207
  5. LANADELUMAB [Suspect]
     Active Substance: LANADELUMAB
     Dosage: 2 MILLILITER, Q2WEEKS
  6. LANADELUMAB [Suspect]
     Active Substance: LANADELUMAB
     Dosage: 300 MILLIGRAM, Q2WEEKS
  7. FLUOROURACIL [Suspect]
     Active Substance: FLUOROURACIL
     Indication: Product used for unknown indication
     Route: 061
  8. RUCONEST [Concomitant]
     Active Substance: CONESTAT ALFA
  9. EPINEPHRINE [Concomitant]
     Active Substance: EPINEPHRINE
  10. STERILE WATER [Concomitant]
     Active Substance: WATER

REACTIONS (15)
  - Intestinal obstruction [Recovering/Resolving]
  - Spinal fracture [Unknown]
  - Hereditary angioedema [Not Recovered/Not Resolved]
  - Weight decreased [Unknown]
  - Stress [Unknown]
  - Mastocytosis [Unknown]
  - Lethargy [Unknown]
  - Malaise [Unknown]
  - COVID-19 [Unknown]
  - Product dose omission issue [Unknown]
  - Weight increased [Unknown]
  - Cardiac disorder [Unknown]
  - Blood creatinine increased [Unknown]
  - Product use issue [Unknown]
  - Blood glucose abnormal [Unknown]

NARRATIVE: CASE EVENT DATE: 20190919
